FAERS Safety Report 13126824 (Version 1)
Quarter: 2017Q1

REPORT INFORMATION
  Report Type: Spontaneous
  Country: US (occurrence: US)
  Receive Date: 20170118
  Receipt Date: 20170118
  Transmission Date: 20170428
  Serious: No
  Sender: FDA-Public Use
  Company Number: US-ROCHE-1761576

PATIENT
  Age: 16 Year
  Sex: Male

DRUGS (1)
  1. RITUXAN [Suspect]
     Active Substance: RITUXIMAB
     Indication: ENZYME ABNORMALITY
     Route: 065

REACTIONS (3)
  - Immune thrombocytopenic purpura [Unknown]
  - Factor II inhibition [Unknown]
  - Drug effect decreased [Unknown]
